FAERS Safety Report 8490534-5 (Version None)
Quarter: 2012Q3

REPORT INFORMATION
  Report Type: 
  Country: None (occurrence: None)
  Receive Date: 20120705
  Receipt Date: 20120702
  Transmission Date: 20120928
  Serious: No
  Sender: FDA-Public Use
  Company Number: US-B.I. PHARMACEUTICALS,INC./RIDGEFIELD-2012-BP-14878BP

PATIENT
  Sex: Female

DRUGS (9)
  1. PRAVASTATIN [Concomitant]
     Dosage: 40 MG
     Route: 048
  2. SPIRACTALONE [Concomitant]
  3. DIGOXIN [Concomitant]
  4. CARVEDILOL [Concomitant]
  5. BIMADINE [Concomitant]
  6. PRADAXA [Suspect]
     Indication: ATRIAL FIBRILLATION
     Dosage: 300 MG
     Route: 048
     Dates: start: 20111001
  7. LISINOPRIL [Concomitant]
  8. OMEPRAZOLE [Concomitant]
  9. OXYBUTYNIN [Concomitant]

REACTIONS (2)
  - PYREXIA [None]
  - ABDOMINAL PAIN UPPER [None]
